FAERS Safety Report 7638816-0 (Version None)
Quarter: 2011Q3

REPORT INFORMATION
  Report Type: 
  Country: None (occurrence: None)
  Receive Date: 20110727
  Receipt Date: 20110713
  Transmission Date: 20111222
  Serious: Yes (Other)
  Sender: FDA-Public Use
  Company Number: JP-ROCHE-791358

PATIENT
  Age: 75 Year
  Sex: Female

DRUGS (18)
  1. AVASTIN [Suspect]
     Route: 041
     Dates: start: 20100601
  2. AVASTIN [Suspect]
     Route: 041
     Dates: start: 20080101, end: 20090701
  3. FLUOROURACIL [Concomitant]
     Route: 040
     Dates: start: 20080501, end: 20080101
  4. LEUCOVORIN CALCIUM [Concomitant]
     Route: 041
     Dates: start: 20100601
  5. AVASTIN [Suspect]
     Indication: RECTAL CANCER
     Route: 041
     Dates: start: 20080501, end: 20080101
  6. OXALIPLATIN [Suspect]
     Route: 041
     Dates: start: 20080501, end: 20080101
  7. FLUOROURACIL [Concomitant]
     Route: 040
     Dates: start: 20080101, end: 20090701
  8. LEUCOVORIN CALCIUM [Concomitant]
     Route: 041
     Dates: start: 20080501, end: 20080101
  9. LEUCOVORIN CALCIUM [Concomitant]
     Route: 041
     Dates: start: 20080101, end: 20090701
  10. AVASTIN [Suspect]
     Route: 041
     Dates: start: 20100301, end: 20100601
  11. OXALIPLATIN [Suspect]
     Route: 041
     Dates: start: 20100601
  12. TS-1 [Concomitant]
     Dosage: FORM; PERORAL AGENT
     Route: 048
     Dates: start: 20090801, end: 20100301
  13. OXALIPLATIN [Suspect]
     Route: 041
     Dates: start: 20100301, end: 20100601
  14. IRINOTECAN HCL [Concomitant]
     Route: 041
     Dates: start: 20080101, end: 20090701
  15. XELODA [Suspect]
     Indication: RECTAL CANCER
     Route: 048
     Dates: start: 20100301, end: 20100601
  16. FLUOROURACIL [Concomitant]
     Route: 040
     Dates: start: 20080501, end: 20080101
  17. FLUOROURACIL [Concomitant]
     Route: 040
     Dates: start: 20080101, end: 20090701
  18. FLUOROURACIL [Concomitant]
     Route: 040
     Dates: start: 20100601

REACTIONS (3)
  - HYPOAESTHESIA [None]
  - DIARRHOEA [None]
  - ALOPECIA [None]
